FAERS Safety Report 10023540 (Version 1)
Quarter: 2014Q1

REPORT INFORMATION
  Report Type: Spontaneous
  Country: DE (occurrence: None)
  Receive Date: 20140103
  Receipt Date: 20140103
  Transmission Date: 20141002
  Serious: Yes (Hospitalization)
  Sender: FDA-Public Use
  Company Number: SYM-2013-13611

PATIENT
  Age: 75 Year
  Sex: Male

DRUGS (1)
  1. ZYCLARA [Suspect]
     Indication: ACTINIC KERATOSIS
     Route: 061
     Dates: start: 20131028, end: 20131108

REACTIONS (7)
  - Inflammation [None]
  - Nasopharyngitis [None]
  - Infection [None]
  - General physical health deterioration [None]
  - Fear [None]
  - Scab [None]
  - Nausea [None]
